FAERS Safety Report 19642612 (Version 1)
Quarter: 2021Q3

REPORT INFORMATION
  Report Type: Spontaneous
  Country: US (occurrence: US)
  Receive Date: 20210730
  Receipt Date: 20210730
  Transmission Date: 20211014
  Serious: Yes (Hospitalization)
  Sender: FDA-Public Use
  Company Number: US-PFIZER INC-202100917786

PATIENT
  Age: 66 Year
  Sex: Female

DRUGS (2)
  1. TOVIAZ [Suspect]
     Active Substance: FESOTERODINE FUMARATE
     Indication: MICTURITION DISORDER
     Dosage: 8 MG, 1X/DAY
     Route: 048
     Dates: start: 2014, end: 202008
  2. TOVIAZ [Suspect]
     Active Substance: FESOTERODINE FUMARATE
     Indication: INCONTINENCE

REACTIONS (2)
  - Heat illness [Unknown]
  - Mental disorder [Unknown]

NARRATIVE: CASE EVENT DATE: 202007
